FAERS Safety Report 12634626 (Version 2)
Quarter: 2016Q3

REPORT INFORMATION
  Report Type: Spontaneous
  Country: US (occurrence: US)
  Receive Date: 20160809
  Receipt Date: 20160921
  Transmission Date: 20161109
  Serious: Yes (Hospitalization)
  Sender: FDA-Public Use
  Company Number: US-ASTRAZENECA-2016SE84103

PATIENT
  Age: 87 Year
  Sex: Female
  Weight: 56.7 kg

DRUGS (6)
  1. SYMBICORT [Suspect]
     Active Substance: BUDESONIDE\FORMOTEROL FUMARATE DIHYDRATE
     Indication: ASTHMA
     Dosage: 160/4.5 MCG. 2 PUFFS 2 TIMES DAILY
     Route: 055
     Dates: start: 20160622
  2. SYMBICORT [Suspect]
     Active Substance: BUDESONIDE\FORMOTEROL FUMARATE DIHYDRATE
     Indication: ASTHMA
     Dosage: 2 PUFFS DAILY
     Route: 055
     Dates: start: 2015
  3. ALBUTEROL TABLET [Concomitant]
     Indication: ASTHMA
     Dosage: 4.0MG INTERMITTENT
     Route: 048
  4. SYMBICORT [Suspect]
     Active Substance: BUDESONIDE\FORMOTEROL FUMARATE DIHYDRATE
     Indication: ASTHMA
     Dosage: 160/4.5 MCG. 2 PUFFS 2 TIMES DAILY
     Route: 055
     Dates: start: 2013
  5. SPIRIVA [Concomitant]
     Active Substance: TIOTROPIUM BROMIDE MONOHYDRATE
     Indication: ASTHMA
     Dosage: DAILY
     Route: 055
     Dates: start: 2012
  6. ALBUTEROL NEBULIZER SOLUTION [Concomitant]
     Active Substance: ALBUTEROL
     Indication: ASTHMA
     Dosage: INTERMITTENT
     Route: 055

REACTIONS (4)
  - Macular degeneration [Unknown]
  - Product quality issue [Unknown]
  - Intentional product misuse [Unknown]
  - Pneumonia [Unknown]

NARRATIVE: CASE EVENT DATE: 2014
